FAERS Safety Report 4943446-5 (Version None)
Quarter: 2006Q1

REPORT INFORMATION
  Report Type: 
  Country: None (occurrence: None)
  Receive Date: 20060309
  Receipt Date: 20060224
  Transmission Date: 20060701
  Serious: Yes (Death, Hospitalization, Other)
  Sender: FDA-Public Use
  Company Number: 2006024700

PATIENT
  Age: 87 Year
  Sex: Female
  Weight: 52.1637 kg

DRUGS (18)
  1. DIFLUCAN [Suspect]
     Indication: ILL-DEFINED DISORDER
     Dosage: 150 MG, ORAL
     Route: 048
     Dates: start: 20050701
  2. SEROQUEL [Suspect]
     Indication: SEDATION
     Dates: start: 20050728, end: 20050808
  3. RISPERDAL [Suspect]
     Indication: ILL-DEFINED DISORDER
  4. LEXAPRO [Suspect]
     Indication: ILL-DEFINED DISORDER
  5. NAPROSYN [Suspect]
     Indication: ILL-DEFINED DISORDER
  6. ARICEPT [Concomitant]
  7. EXELON [Concomitant]
  8. ATARAX [Concomitant]
  9. LISINOPRIL [Concomitant]
  10. LOTREL [Concomitant]
  11. ACETAMINOPHEN [Concomitant]
  12. ALL OTHER THERAPEUTIC PRODUCTS [Concomitant]
  13. DEPAKOTE [Concomitant]
  14. DEPAKENE [Concomitant]
  15. COGENTIN [Concomitant]
  16. ATIVAN [Concomitant]
  17. CIPROFLOXACIN HCL [Concomitant]
  18. NUTRITIONAL SUPPLEMENT (GENERAL NUTRIENTS) [Concomitant]

REACTIONS (17)
  - AGGRESSION [None]
  - AMNESIA [None]
  - ANGER [None]
  - CARDIOPULMONARY FAILURE [None]
  - CONDITION AGGRAVATED [None]
  - CONFUSIONAL STATE [None]
  - DELUSION [None]
  - DEMENTIA ALZHEIMER'S TYPE [None]
  - FRUSTRATION [None]
  - HALLUCINATION [None]
  - HYPOTENSION [None]
  - MUSCLE SPASMS [None]
  - MUSCLE TWITCHING [None]
  - NOCTURIA [None]
  - OVERDOSE [None]
  - URINARY TRACT INFECTION [None]
  - VOMITING [None]
